FAERS Safety Report 5173437-3 (Version None)
Quarter: 2006Q4

REPORT INFORMATION
  Report Type: 
  Country: None (occurrence: None)
  Receive Date: 20061208
  Receipt Date: 20061208
  Transmission Date: 20070319
  Serious: Yes (Hospitalization, Other)
  Sender: FDA-Public Use
  Company Number: None

PATIENT
  Sex: Male
  Weight: 122 kg

DRUGS (8)
  1. IRINOTECAN HCL [Suspect]
     Indication: GLIOBLASTOMA MULTIFORME
     Dosage: 325MG/M2   DAY 1, 8, 22, 29   IV
     Route: 042
     Dates: start: 20060928
  2. IRINOTECAN HCL [Suspect]
     Indication: GLIOBLASTOMA MULTIFORME
     Dosage: 325MG/M2   DAY 1, 8, 22, 29   IV
     Route: 042
     Dates: start: 20061004
  3. TEMODAR [Suspect]
     Indication: GLIOBLASTOMA MULTIFORME
     Dosage: 200MG/M2    DAYS 1-5    PO
     Route: 048
     Dates: start: 20060928, end: 20061002
  4. DILANTIN [Concomitant]
  5. DEPAKOTE [Concomitant]
  6. DECADRON [Concomitant]
  7. PEPCID [Concomitant]
  8. CLORAZEPATE [Concomitant]

REACTIONS (5)
  - CONFUSIONAL STATE [None]
  - CONVULSION [None]
  - GLIOBLASTOMA MULTIFORME [None]
  - MALIGNANT NEOPLASM PROGRESSION [None]
  - MENTAL STATUS CHANGES [None]
